FAERS Safety Report 20066427 (Version 2)
Quarter: 2021Q4

REPORT INFORMATION
  Report Type: Other
  Country: US (occurrence: None)
  Receive Date: 20211115
  Receipt Date: 20211117
  Transmission Date: 20220303
  Serious: Yes (Other)
  Sender: FDA-Public Use
  Company Number: US-ROCHE-2954535

PATIENT
  Age: 64 Year
  Sex: Female

DRUGS (5)
  1. COBIMETINIB [Suspect]
     Active Substance: COBIMETINIB
     Indication: Malignant melanoma stage IV
     Dosage: 6 1/2 MONTHS
     Route: 065
  2. VEMURAFENIB [Suspect]
     Active Substance: VEMURAFENIB
     Indication: Malignant melanoma stage IV
     Route: 065
  3. VEMURAFENIB [Suspect]
     Active Substance: VEMURAFENIB
     Route: 065
  4. ENCORAFENIB [Concomitant]
     Active Substance: ENCORAFENIB
  5. BINIMETINIB [Concomitant]
     Active Substance: BINIMETINIB

REACTIONS (1)
  - Tubulointerstitial nephritis [Unknown]
